FAERS Safety Report 10449451 (Version 1)
Quarter: 2014Q3

REPORT INFORMATION
  Report Type: Spontaneous
  Country: DE (occurrence: None)
  Receive Date: 20140910
  Receipt Date: 20140910
  Transmission Date: 20150326
  Serious: Yes (Hospitalization)
  Sender: FDA-Public Use
  Company Number: IPC201408-000449

PATIENT
  Age: 54 Year
  Sex: Male

DRUGS (12)
  1. NORTRIPTYLINE [Suspect]
     Active Substance: NORTRIPTYLINE
     Dates: start: 201202
  2. LORAZEPAM. [Suspect]
     Active Substance: LORAZEPAM
     Dosage: UP TP 3.5 MG PER DAY
     Dates: start: 201202
  3. ACETYLSALICYLIC ACID [Concomitant]
     Active Substance: ASPIRIN
  4. METOPROLOL TARTRATE. [Suspect]
     Active Substance: METOPROLOL TARTRATE
     Indication: HYPERTENSION
     Dates: start: 201202
  5. TAMSULOSIN [Concomitant]
     Active Substance: TAMSULOSIN
  6. PANTAPRAZOLE [Concomitant]
  7. TORASEMIDE [Suspect]
     Active Substance: TORSEMIDE
     Indication: POLYURIA
     Dates: start: 201202
  8. STIMVASTATIN [Concomitant]
  9. VALPROIC ACID. [Suspect]
     Active Substance: VALPROIC ACID
     Dates: start: 201202
  10. QUETIAPINE [Suspect]
     Active Substance: QUETIAPINE
     Dates: start: 201202
  11. LEVOTHYROXIN [Concomitant]
     Active Substance: LEVOTHYROXINE
  12. RAMIPRIL. [Concomitant]
     Active Substance: RAMIPRIL

REACTIONS (14)
  - Pneumonia [None]
  - Depressed level of consciousness [None]
  - Depressed mood [None]
  - Coordination abnormal [None]
  - Somnolence [None]
  - Drug interaction [None]
  - Leukocytosis [None]
  - Bronchitis [None]
  - Fall [None]
  - Hyponatraemia [None]
  - Cognitive disorder [None]
  - Dysarthria [None]
  - Psychomotor hyperactivity [None]
  - Hallucination, auditory [None]
